FAERS Safety Report 7760242-4 (Version None)
Quarter: 2011Q3

REPORT INFORMATION
  Report Type: 
  Country: None (occurrence: None)
  Receive Date: 20110919
  Receipt Date: 20110908
  Transmission Date: 20111222
  Serious: Yes (Hospitalization)
  Sender: FDA-Public Use
  Company Number: DE-GLAXOSMITHKLINE-B0654753B

PATIENT
  Sex: Female
  Weight: 69 kg

DRUGS (3)
  1. CYCLOPHOSPHAMIDE [Suspect]
     Indication: BREAST CANCER
     Dosage: 1100MG CYCLIC
     Route: 042
     Dates: start: 20100416
  2. EPIRUBICIN [Suspect]
     Indication: BREAST CANCER
     Dosage: 164MG CYCLIC
     Route: 042
     Dates: start: 20100416
  3. LAPATINIB [Suspect]
     Indication: BREAST CANCER
     Dates: start: 20100416

REACTIONS (1)
  - FEBRILE NEUTROPENIA [None]
